FAERS Safety Report 9341680 (Version 1)
Quarter: 2013Q2

REPORT INFORMATION
  Report Type: Spontaneous
  Country: US (occurrence: None)
  Receive Date: 20130606
  Receipt Date: 20130606
  Transmission Date: 20140414
  Serious: No
  Sender: FDA-Public Use
  Company Number: B0896175A

PATIENT
  Sex: 0

DRUGS (5)
  1. MELPHALAN [Suspect]
     Indication: AMYLOIDOSIS
  2. LENALIDOMIDE [Suspect]
     Indication: AMYLOIDOSIS
  3. DEXAMETHASONE [Suspect]
     Indication: AMYLOIDOSIS
  4. ASPIRIN [Concomitant]
  5. PROTON PUMP INHIBITORS [Concomitant]

REACTIONS (8)
  - Toxicity to various agents [None]
  - Gastrointestinal haemorrhage [None]
  - Sepsis [None]
  - Neutropenia [None]
  - Leukopenia [None]
  - Thrombocytopenia [None]
  - Anaemia [None]
  - Bone marrow failure [None]
